FAERS Safety Report 22121927 (Version 2)
Quarter: 2023Q2

REPORT INFORMATION
  Report Type: Spontaneous
  Country: JP (occurrence: None)
  Receive Date: 20230321
  Receipt Date: 20230505
  Transmission Date: 20230722
  Serious: Yes (Hospitalization)
  Sender: FDA-Public Use
  Company Number: 2023A031392

PATIENT
  Age: 69 Year
  Sex: Male
  Weight: 78 kg

DRUGS (7)
  1. EVUSHELD [Suspect]
     Active Substance: CILGAVIMAB\TIXAGEVIMAB
     Indication: COVID-19 prophylaxis
     Dosage: 600.0MG UNKNOWN
     Route: 030
     Dates: start: 20221213, end: 20221213
  2. NEXIUM [Concomitant]
     Active Substance: ESOMEPRAZOLE MAGNESIUM
     Indication: Gastrooesophageal reflux disease
     Route: 048
  3. AMLODIPINE [Concomitant]
     Active Substance: AMLODIPINE BESYLATE
     Indication: Hypertension
     Route: 048
  4. OLMESARTAN [Concomitant]
     Active Substance: OLMESARTAN
     Indication: Hypertension
     Route: 048
  5. ZOVIRAX [Concomitant]
     Active Substance: ACYCLOVIR
     Indication: Infection prophylaxis
     Route: 048
     Dates: start: 20220913
  6. SULFAMETHOXAZOLE\TRIMETHOPRIM [Concomitant]
     Active Substance: SULFAMETHOXAZOLE\TRIMETHOPRIM
     Indication: Infection prophylaxis
     Dosage: DOSE UNKNOWN, EVERY DAY
     Route: 048
     Dates: start: 20221011
  7. BEZAFIBRATE [Concomitant]
     Active Substance: BEZAFIBRATE
     Indication: Hyperlipidaemia
     Route: 048

REACTIONS (1)
  - Rash pruritic [Recovering/Resolving]

NARRATIVE: CASE EVENT DATE: 20221213
